FAERS Safety Report 12874042 (Version 1)
Quarter: 2016Q4

REPORT INFORMATION
  Report Type: Spontaneous
  Country: US (occurrence: US)
  Receive Date: 20161021
  Receipt Date: 20161021
  Transmission Date: 20170207
  Serious: Yes (Other)
  Sender: FDA-Public Use
  Company Number: US-JNJFOC-20161016298

PATIENT
  Sex: Male

DRUGS (1)
  1. NIZORAL [Suspect]
     Active Substance: KETOCONAZOLE
     Indication: PRODUCT USED FOR UNKNOWN INDICATION
     Dosage: HAS USED NIZORAL 2% ON AND OFF OVER THE YEARS; STARTED USING NIZORAL 2% SHAMPOO LAST WEEK
     Route: 061

REACTIONS (1)
  - Nephrolithiasis [Unknown]
